FAERS Safety Report 4413973-8 (Version None)
Quarter: 2004Q3

REPORT INFORMATION
  Report Type: 
  Country: None (occurrence: None)
  Receive Date: 20040728
  Receipt Date: 20040715
  Transmission Date: 20050211
  Serious: Yes (Life-Threatening, Hospitalization)
  Sender: FDA-Public Use
  Company Number: 2004048463

PATIENT
  Age: 64 Year
  Sex: Male
  Weight: 75 kg

DRUGS (5)
  1. SORTIS (ATORVASTATIN) [Suspect]
     Indication: HYPERCHOLESTEROLAEMIA
     Dosage: 20 MG (20ME, 1 UB 1 D)
     Dates: start: 20040706, end: 20040710
  2. CANDESARTAN CILEXETIL (CANDESARTAN CILEXETIL) [Suspect]
     Indication: HYPERTENSION
     Dosage: 8 MG (8 MG, 1 IN 1 D)
     Route: 048
     Dates: start: 20040706, end: 20040701
  3. METOPROLOL [Concomitant]
  4. BELOC-ZOC COMP [Concomitant]
  5. METOPROLOL SUCCINATE [Concomitant]

REACTIONS (5)
  - ANGIONEUROTIC OEDEMA [None]
  - CARDIOVASCULAR DISORDER [None]
  - DYSPNOEA [None]
  - URTICARIA [None]
  - VOMITING [None]
